FAERS Safety Report 14830286 (Version 1)
Quarter: 2018Q2

REPORT INFORMATION
  Report Type: Spontaneous
  Country: US (occurrence: US)
  Receive Date: 20180430
  Receipt Date: 20180430
  Transmission Date: 20180711
  Serious: No
  Sender: FDA-Public Use
  Company Number: US-BAUSCH-BL-2018-004379

PATIENT
  Sex: Female
  Weight: 72.64 kg

DRUGS (2)
  1. ALREX [Suspect]
     Active Substance: LOTEPREDNOL ETABONATE
     Indication: CONJUNCTIVITIS
  2. ALREX [Suspect]
     Active Substance: LOTEPREDNOL ETABONATE
     Indication: DRY EYE
     Dosage: ONE DROP IN EACH EYE, TWO OR THREE TIMES A DAY
     Route: 047
     Dates: start: 2017

REACTIONS (5)
  - Ill-defined disorder [Recovering/Resolving]
  - Eye swelling [Unknown]
  - Drug ineffective [Recovered/Resolved]
  - Eye irritation [Unknown]
  - Product quality issue [Unknown]
